FAERS Safety Report 14913080 (Version 3)
Quarter: 2020Q4

REPORT INFORMATION
  Report Type: Report from Study
  Country: FR (occurrence: FR)
  Receive Date: 20180518
  Receipt Date: 20201104
  Transmission Date: 20210113
  Serious: Yes (Death, Hospitalization, Other)
  Sender: FDA-Public Use
  Company Number: FR-JAZZ-2018-FR-007820

PATIENT

DRUGS (5)
  1. DEFITELIO [Suspect]
     Active Substance: DEFIBROTIDE SODIUM
     Indication: VENOOCCLUSIVE LIVER DISEASE
     Dosage: 25.3 MG/KG, QD
     Dates: start: 20160201
  2. DEFITELIO [Suspect]
     Active Substance: DEFIBROTIDE SODIUM
     Dosage: 24.4 MILLIGRAM/KILOGRAM/DAY
     Dates: end: 20160215
  3. TRIFLUCAN [Concomitant]
     Active Substance: FLUCONAZOLE
     Indication: ANTIFUNGAL PROPHYLAXIS
     Dosage: 400 MG, QD
     Route: 042
     Dates: start: 20160119, end: 20160210
  4. COLISTIN [Concomitant]
     Active Substance: COLISTIN
     Indication: PSEUDOMONAS INFECTION
     Dosage: 4.5 MG, QD
     Route: 042
     Dates: start: 20160205, end: 20160216
  5. AZACTAM [Concomitant]
     Active Substance: AZTREONAM
     Indication: PSEUDOMONAS INFECTION
     Dosage: 2000 MG, QD
     Route: 042
     Dates: start: 20160205, end: 20160216

REACTIONS (4)
  - Multiple organ dysfunction syndrome [Unknown]
  - Candida infection [Fatal]
  - Septic shock [Fatal]
  - Off label use [Unknown]

NARRATIVE: CASE EVENT DATE: 20160201
